FAERS Safety Report 19300272 (Version 1)
Quarter: 2021Q2

REPORT INFORMATION
  Report Type: Spontaneous
  Country: US (occurrence: US)
  Receive Date: 20210525
  Receipt Date: 20210525
  Transmission Date: 20210717
  Serious: Yes (Hospitalization)
  Sender: FDA-Public Use
  Company Number: None

PATIENT
  Age: 8 Month
  Sex: Female
  Weight: 11.64 kg

DRUGS (10)
  1. CYTARABINE. [Suspect]
     Active Substance: CYTARABINE
     Dates: end: 20191019
  2. DEXAMETASONE [Suspect]
     Active Substance: DEXAMETHASONE
     Dates: end: 20191026
  3. HYDROCORTISONE. [Suspect]
     Active Substance: HYDROCORTISONE
     Dates: end: 20191027
  4. METHOTREXATE. [Suspect]
     Active Substance: METHOTREXATE
     Dates: end: 20191027
  5. PREDNISONE. [Suspect]
     Active Substance: PREDNISONE
     Dates: end: 20191006
  6. VINCRISTINE SULFATE. [Suspect]
     Active Substance: VINCRISTINE SULFATE
     Dates: end: 20191027
  7. VANCOMYCIN [Concomitant]
     Active Substance: VANCOMYCIN
  8. ONCASPAR [Suspect]
     Active Substance: PEGASPARGASE
     Dates: end: 20191010
  9. GENTAMYCIN [Concomitant]
     Active Substance: GENTAMICIN
  10. DAUNORUBICIN [Suspect]
     Active Substance: DAUNORUBICIN
     Dates: end: 20191007

REACTIONS (15)
  - Catheter site haemorrhage [None]
  - Sepsis [None]
  - Mouth haemorrhage [None]
  - Blood creatinine increased [None]
  - Anal ulcer [None]
  - Shock haemorrhagic [None]
  - Acute kidney injury [None]
  - Hyperglycaemia [None]
  - Leukopenia [None]
  - Mouth ulceration [None]
  - Haemodialysis [None]
  - Neutropenia [None]
  - Coagulopathy [None]
  - Blood urea increased [None]
  - Haematemesis [None]

NARRATIVE: CASE EVENT DATE: 20191029
